FAERS Safety Report 9004478 (Version 1)
Quarter: 2013Q1

REPORT INFORMATION
  Report Type: Report from Study
  Country: DE (occurrence: DE)
  Receive Date: 20130108
  Receipt Date: 20130108
  Transmission Date: 20140127
  Serious: Yes (Death)
  Sender: FDA-Public Use
  Company Number: DE-BAXTER-2013BAX000033

PATIENT
  Age: 75 Year
  Sex: Male

DRUGS (3)
  1. ENDOXAN 1G [Suspect]
     Indication: NON-HODGKIN^S LYMPHOMA
     Route: 042
     Dates: start: 20071219, end: 20080718
  2. RITUXIMAB [Suspect]
     Indication: NON-HODGKIN^S LYMPHOMA
     Route: 042
     Dates: start: 20071219, end: 20080718
  3. PENTOSTATIN [Suspect]
     Indication: NON-HODGKIN^S LYMPHOMA
     Route: 042
     Dates: start: 20071219, end: 20080718

REACTIONS (8)
  - General physical health deterioration [Unknown]
  - Lymph node tuberculosis [Unknown]
  - Pyrexia [Unknown]
  - Delirium [Unknown]
  - Pyrexia [Fatal]
  - Cachexia [Fatal]
  - Renal failure [Fatal]
  - Cardiac failure [Fatal]
